FAERS Safety Report 8757732 (Version 4)
Quarter: 2013Q3

REPORT INFORMATION
  Report Type: Spontaneous
  Country: FR (occurrence: FR)
  Receive Date: 20120828
  Receipt Date: 20130704
  Transmission Date: 20140515
  Serious: Yes (Hospitalization, Other)
  Sender: FDA-Public Use
  Company Number: FR-009507513-2012SP025680

PATIENT
  Age: 53 Year
  Sex: Male
  Weight: 81 kg

DRUGS (15)
  1. VICTRELIS [Suspect]
     Indication: HEPATITIS C
     Dosage: 800 MG, TID
     Dates: start: 20120103
  2. PEGASYS [Suspect]
     Indication: HEPATITIS C
     Dosage: 180 ?G, QW
     Dates: start: 20111207
  3. COPEGUS [Suspect]
     Indication: HEPATITIS C
     Dosage: 600 MG, BID
     Dates: start: 20111207
  4. COPEGUS [Suspect]
     Dosage: 1000 MG, QD
     Dates: start: 20120416
  5. COPEGUS [Suspect]
     Dosage: 400 MG, QD
     Dates: start: 20120830
  6. LODOZ [Concomitant]
     Indication: HYPERTENSION
     Dosage: 5 MG, QD
     Dates: start: 2003
  7. PARIET [Concomitant]
     Indication: OESOPHAGITIS
     Dosage: 20 MG, QD
  8. ZOPICLONE [Concomitant]
     Indication: INSOMNIA
     Dosage: 7.5 MG, QD
  9. GLICLAZIDE [Concomitant]
     Indication: DIABETES MELLITUS
     Dosage: 30 MG, QD
  10. APROVEL [Concomitant]
     Indication: HYPERTENSION
     Dosage: 150 MG, QD
     Dates: start: 200611
  11. APROVEL [Concomitant]
     Dosage: 75 UNK, UNK
     Dates: start: 20120416
  12. PRAXILENE [Concomitant]
     Indication: PERIPHERAL ISCHAEMIA
     Dosage: 200 MG, TID
     Dates: start: 20120318
  13. INNOHEP [Concomitant]
     Indication: PERIPHERAL ISCHAEMIA
     Dosage: 4500 IU, ONCE
     Dates: start: 20120318, end: 20120318
  14. PLAVIX [Concomitant]
     Indication: PERIPHERAL ISCHAEMIA
     Dosage: 75 MG, QD
     Dates: start: 20120318
  15. DOLIPRANE [Concomitant]
     Indication: ADVERSE EVENT
     Dosage: 1000 MG, TID
     Dates: start: 20111207

REACTIONS (3)
  - Peripheral ischaemia [Not Recovered/Not Resolved]
  - Neutropenia [Recovered/Resolved]
  - Neutropenia [Recovered/Resolved]
